FAERS Safety Report 9311852 (Version 7)
Quarter: 2013Q4

REPORT INFORMATION
  Report Type: Report from Study
  Country: CA (occurrence: CA)
  Receive Date: 20130528
  Receipt Date: 20131112
  Transmission Date: 20140711
  Serious: Yes (Other)
  Sender: FDA-Public Use
  Company Number: PHHY2013CA041365

PATIENT
  Age: 69 Year
  Sex: Female

DRUGS (1)
  1. SANDOSTATIN LAR [Suspect]
     Indication: CARCINOID TUMOUR
     Dosage: 30 MG, EVERY 4 WEEKS
     Route: 030
     Dates: start: 20130226

REACTIONS (13)
  - Acne [Recovering/Resolving]
  - Pruritus generalised [Recovering/Resolving]
  - Oxygen saturation decreased [Unknown]
  - Rash pustular [Unknown]
  - Gait disturbance [Unknown]
  - Secretion discharge [Unknown]
  - Skin lesion [Recovered/Resolved]
  - Vomiting [Recovering/Resolving]
  - Abdominal pain [Recovering/Resolving]
  - Diarrhoea [Unknown]
  - Frequent bowel movements [Unknown]
  - Rash [Recovering/Resolving]
  - Pruritus [Unknown]
